FAERS Safety Report 6165412-7 (Version None)
Quarter: 2009Q2

REPORT INFORMATION
  Report Type: 
  Country: None (occurrence: None)
  Receive Date: 20090423
  Receipt Date: 20090416
  Transmission Date: 20091009
  Serious: Yes (Other)
  Sender: FDA-Public Use
  Company Number: US-WATSON-2009-02594

PATIENT
  Age: 66 Year
  Sex: Female

DRUGS (1)
  1. HYDROMORPHONE HYDROCHLORIDE (WATSON LABORATORIES) [Suspect]
     Indication: ANALGESIA
     Dosage: UNKNOWN
     Route: 042

REACTIONS (2)
  - CONDITION AGGRAVATED [None]
  - REVERSIBLE ISCHAEMIC NEUROLOGICAL DEFICIT [None]
